FAERS Safety Report 8790763 (Version 1)
Quarter: 2012Q4

REPORT INFORMATION
  Report Type: Spontaneous
  Country: US (occurrence: None)
  Receive Date: 20120913
  Receipt Date: 20120913
  Transmission Date: 20130627
  Serious: No
  Sender: FDA-Public Use
  Company Number: None

PATIENT
  Age: 30 Year
  Sex: Female
  Weight: 68.95 kg

DRUGS (2)
  1. MIRENA IUD [Suspect]
     Indication: CONTRACEPTION
     Route: 015
     Dates: start: 20120824, end: 20120906
  2. MIRENA [Concomitant]

REACTIONS (1)
  - Device dislocation [None]
